FAERS Safety Report 4360751-4 (Version None)
Quarter: 2004Q2

REPORT INFORMATION
  Report Type: 
  Country: None (occurrence: None)
  Receive Date: 20040517
  Receipt Date: 20040507
  Transmission Date: 20050107
  Serious: Yes (Hospitalization)
  Sender: FDA-Public Use
  Company Number: 2004-05-0389

PATIENT
  Age: 70 Year
  Sex: Male

DRUGS (1)
  1. INTRON A (INTERFERON ALFA 2B RECOMBINANT) INJECTABLE [Suspect]
     Indication: MALIGNANT MELANOMA

REACTIONS (1)
  - HYPONATRAEMIA [None]
